FAERS Safety Report 9833740 (Version 1)
Quarter: 2014Q1

REPORT INFORMATION
  Report Type: Spontaneous
  Country: US (occurrence: US)
  Receive Date: 20140122
  Receipt Date: 20140122
  Transmission Date: 20141002
  Serious: No
  Sender: FDA-Public Use
  Company Number: US-BIOGENIDEC-2013BI069564

PATIENT
  Age: 57 Year
  Sex: Female

DRUGS (12)
  1. LEXAPRO [Concomitant]
  2. ADDERALL [Concomitant]
  3. BUPROPION [Concomitant]
  4. ASA LOW DOSE EC [Concomitant]
  5. AMPYRA [Concomitant]
  6. HCTZ/TRIAMT [Concomitant]
  7. TECFIDERA [Suspect]
     Indication: MULTIPLE SCLEROSIS
     Route: 048
     Dates: start: 20130702, end: 20130708
  8. TECFIDERA [Suspect]
     Indication: MULTIPLE SCLEROSIS
     Route: 048
     Dates: start: 20130703
  9. TECFIDERA [Suspect]
     Indication: MULTIPLE SCLEROSIS
     Route: 048
     Dates: start: 20130709
  10. DETROL [Concomitant]
  11. LISINOPRIL [Concomitant]
  12. VITAMIN C [Concomitant]

REACTIONS (3)
  - Dysgeusia [Not Recovered/Not Resolved]
  - Dyspepsia [Not Recovered/Not Resolved]
  - Hot flush [Not Recovered/Not Resolved]
